FAERS Safety Report 15703574 (Version 14)
Quarter: 2020Q2

REPORT INFORMATION
  Report Type: Report from Study
  Country: CA (occurrence: CA)
  Receive Date: 20181210
  Receipt Date: 20200526
  Transmission Date: 20200713
  Serious: Yes (Other)
  Sender: FDA-Public Use
  Company Number: CA-ROCHE-2223996

PATIENT
  Age: 75 Year
  Sex: Female
  Weight: 77 kg

DRUGS (25)
  1. ESBRIET [Suspect]
     Active Substance: PIRFENIDONE
     Indication: IDIOPATHIC PULMONARY FIBROSIS
     Route: 048
     Dates: start: 20190213
  2. ESBRIET [Suspect]
     Active Substance: PIRFENIDONE
     Route: 048
     Dates: start: 201902
  3. CODEINE [Concomitant]
     Active Substance: CODEINE
  4. SANDOZ ROSUVASTATIN [Concomitant]
     Active Substance: ROSUVASTATIN CALCIUM
  5. ESBRIET [Suspect]
     Active Substance: PIRFENIDONE
     Route: 048
     Dates: start: 20190213
  6. VALIUM [Suspect]
     Active Substance: DIAZEPAM
     Indication: MUSCLE SPASMS
     Route: 065
     Dates: start: 2008
  7. MS CONTIN [Concomitant]
     Active Substance: MORPHINE SULFATE
  8. ALENDRONATE SODIUM. [Concomitant]
     Active Substance: ALENDRONATE SODIUM
  9. ELAVIL [Concomitant]
     Active Substance: AMITRIPTYLINE HYDROCHLORIDE
  10. CALCIUM [Concomitant]
     Active Substance: CALCIUM
  11. ESBRIET [Suspect]
     Active Substance: PIRFENIDONE
     Route: 048
     Dates: start: 20190502
  12. CITALOPRAM [Concomitant]
     Active Substance: CITALOPRAM HYDROBROMIDE
  13. VITAMIN D3 [Concomitant]
     Active Substance: CHOLECALCIFEROL
  14. HYDROCHLOROTHIAZIDE. [Concomitant]
     Active Substance: HYDROCHLOROTHIAZIDE
  15. INCRUSE ELLIPTA [Concomitant]
     Active Substance: UMECLIDINIUM BROMIDE
  16. TRANDOLAPRIL. [Concomitant]
     Active Substance: TRANDOLAPRIL
  17. TRANDOLAPRIL. [Concomitant]
     Active Substance: TRANDOLAPRIL
  18. MAGNESIUM [Concomitant]
     Active Substance: MAGNESIUM
  19. ACETAMINOPHEN. [Concomitant]
     Active Substance: ACETAMINOPHEN
     Route: 065
  20. TYLENOL [Concomitant]
     Active Substance: ACETAMINOPHEN
  21. UMECLIDINIUM BROMIDE [Suspect]
     Active Substance: UMECLIDINIUM BROMIDE
     Indication: PRODUCT USED FOR UNKNOWN INDICATION
     Route: 065
  22. OMEPRAZOLE. [Concomitant]
     Active Substance: OMEPRAZOLE
  23. INCRUSE ELLIPTA [Suspect]
     Active Substance: UMECLIDINIUM BROMIDE
     Indication: PRODUCT USED FOR UNKNOWN INDICATION
     Dosage: DAILY
     Route: 055
     Dates: end: 201903
  24. INSULIN [Concomitant]
     Active Substance: INSULIN NOS
     Dosage: (16 UNITS A DAY)
     Route: 065
  25. OXYGEN. [Concomitant]
     Active Substance: OXYGEN
     Dosage: FOR 1 YEAR, 3-3.5 LPM
     Route: 065

REACTIONS (28)
  - Renal impairment [Unknown]
  - Blood potassium increased [Unknown]
  - Blood immunoglobulin G decreased [Unknown]
  - Blood immunoglobulin G decreased [Not Recovered/Not Resolved]
  - Dyspnoea exertional [Not Recovered/Not Resolved]
  - Erythema [Unknown]
  - Productive cough [Not Recovered/Not Resolved]
  - Decreased appetite [Not Recovered/Not Resolved]
  - Productive cough [Recovering/Resolving]
  - Chronic obstructive pulmonary disease [Unknown]
  - Oxygen saturation decreased [Unknown]
  - Aphonia [Unknown]
  - Myocardial infarction [Unknown]
  - Cystitis [Recovering/Resolving]
  - Fatigue [Recovering/Resolving]
  - Decreased appetite [Unknown]
  - Skin wrinkling [Recovering/Resolving]
  - Fatigue [Not Recovered/Not Resolved]
  - Hypoxia [Unknown]
  - Dyspnoea exertional [Unknown]
  - Aphonia [Not Recovered/Not Resolved]
  - Arthropathy [Unknown]
  - Rash [Unknown]
  - Arthralgia [Not Recovered/Not Resolved]
  - Blood potassium increased [Not Recovered/Not Resolved]
  - Erythema [Not Recovered/Not Resolved]
  - Erythema [Recovering/Resolving]
  - Cystitis [Not Recovered/Not Resolved]

NARRATIVE: CASE EVENT DATE: 20180508
